FAERS Safety Report 6469545-7 (Version None)
Quarter: 2009Q4

REPORT INFORMATION
  Report Type: 
  Country: None (occurrence: None)
  Receive Date: 20091203
  Receipt Date: 20091123
  Transmission Date: 20100525
  Serious: Yes (Hospitalization)
  Sender: FDA-Public Use
  Company Number: US-CELGENEUS-163-21880-09111817

PATIENT
  Sex: Female
  Weight: 48.578 kg

DRUGS (1)
  1. REVLIMID [Suspect]
     Indication: MULTIPLE MYELOMA
     Route: 048
     Dates: start: 20091109, end: 20091118

REACTIONS (1)
  - ACUTE GRAFT VERSUS HOST DISEASE IN INTESTINE [None]
